FAERS Safety Report 9412810 (Version 2)
Quarter: 2013Q4

REPORT INFORMATION
  Report Type: Spontaneous
  Country: US (occurrence: US)
  Receive Date: 20130722
  Receipt Date: 20131002
  Transmission Date: 20140711
  Serious: Yes (Hospitalization, Other)
  Sender: FDA-Public Use
  Company Number: US-TEVA-419830USA

PATIENT
  Age: 77 Year
  Sex: Male

DRUGS (3)
  1. AZILECT [Suspect]
  2. LEXAPRO [Concomitant]
  3. CARBIDOPA W/LEVODOPA [Concomitant]

REACTIONS (3)
  - Mental status changes [Not Recovered/Not Resolved]
  - Delirium [Not Recovered/Not Resolved]
  - Hyperhidrosis [Not Recovered/Not Resolved]
